FAERS Safety Report 7579743-7 (Version None)
Quarter: 2011Q2

REPORT INFORMATION
  Report Type: 
  Country: None (occurrence: None)
  Receive Date: 20110622
  Receipt Date: 20110608
  Transmission Date: 20111010
  Serious: Yes (Hospitalization, Other)
  Sender: FDA-Public Use
  Company Number: ALA_01175_2010

PATIENT
  Sex: Female
  Weight: 66.6788 kg

DRUGS (31)
  1. OSMOPREP [Concomitant]
  2. ACETAMINOPHEN W/ CODEINE [Concomitant]
  3. METHYLPREDNISOLONE [Concomitant]
  4. LISINOPRIL [Concomitant]
  5. PRAVASTATIN [Concomitant]
  6. ACETAMINOPHEN AND HYDROCODONE BITARTRATE [Concomitant]
  7. CIPROFLOXACIN [Concomitant]
  8. LORAZEPAM [Concomitant]
  9. OMEPRAZOLE [Concomitant]
  10. REGLAN [Suspect]
     Indication: GASTROOESOPHAGEAL REFLUX DISEASE
     Dosage: DF ORAL
     Route: 048
     Dates: start: 20061101, end: 20090201
  11. BENADRYL [Concomitant]
  12. METHOCARBAMOL [Concomitant]
  13. PHENEGRAN /00033001/ [Concomitant]
  14. CITALOPRAM [Concomitant]
  15. SUCRALFATE [Concomitant]
  16. CRESTOR [Concomitant]
  17. LISINIPRIL /HCTZ [Concomitant]
  18. MECLIZINE /00072801/ [Concomitant]
  19. PROMETHAZINE [Concomitant]
  20. FEXFOFENADINE [Concomitant]
  21. PROTONIX [Concomitant]
  22. TEMAZEPAM [Concomitant]
  23. TRAMADOL HCL [Concomitant]
  24. METFORMIN HCL [Concomitant]
  25. METRONIDAZOLE [Concomitant]
  26. ACETYLSALICYLIC ACID W/CARISOPRODOL [Concomitant]
  27. PRILOSEC /00661301/ [Concomitant]
  28. ESTRACE [Concomitant]
  29. ENULOSE [Concomitant]
  30. NEXIUM /01479303/ [Concomitant]
  31. CYCLOBENZAPRINE [Concomitant]

REACTIONS (16)
  - BALANCE DISORDER [None]
  - TEMPOROMANDIBULAR JOINT SYNDROME [None]
  - CONDITION AGGRAVATED [None]
  - SURGERY [None]
  - RESTLESS LEGS SYNDROME [None]
  - INTERVERTEBRAL DISC DEGENERATION [None]
  - FALL [None]
  - TARDIVE DYSKINESIA [None]
  - CYST [None]
  - EMOTIONAL DISORDER [None]
  - ECONOMIC PROBLEM [None]
  - CEREBRAL ATROPHY [None]
  - JOINT CONTRACTURE [None]
  - FREEZING PHENOMENON [None]
  - GAIT DISTURBANCE [None]
  - DIZZINESS [None]
